FAERS Safety Report 6228264-2 (Version None)
Quarter: 2009Q2

REPORT INFORMATION
  Report Type: 
  Country: None (occurrence: None)
  Receive Date: 20090612
  Receipt Date: 20090604
  Transmission Date: 20091009
  Serious: Yes (Hospitalization, Other)
  Sender: FDA-Public Use
  Company Number: PHHO2006ES22003

PATIENT

DRUGS (6)
  1. CGS 20267 T30748+ [Suspect]
     Indication: BREAST CANCER
     Dosage: 2.5 MG, QD
     Route: 048
     Dates: start: 20040326, end: 20060717
  2. ZOLEDRONIC ACID [Suspect]
     Dosage: 4 MG,
     Route: 042
     Dates: start: 20040326, end: 20060717
  3. PROZAC [Concomitant]
     Indication: DEPRESSION
     Dosage: UNK
  4. TEMAZEPAM [Concomitant]
     Indication: DEPRESSION
     Dosage: UNK
  5. TIROXINA [Concomitant]
     Indication: HYPOTHYROIDISM
     Dosage: UNK
  6. CHLORTHALIDONE [Concomitant]
     Indication: HYPERTENSION
     Dosage: UNK

REACTIONS (2)
  - HIP ARTHROPLASTY [None]
  - OSTEONECROSIS [None]
